FAERS Safety Report 4664995-3 (Version None)
Quarter: 2005Q2

REPORT INFORMATION
  Report Type: 
  Country: None (occurrence: None)
  Receive Date: 20050518
  Receipt Date: 20050506
  Transmission Date: 20051028
  Serious: Yes (Hospitalization)
  Sender: FDA-Public Use
  Company Number: HU-BRISTOL-MYERS SQUIBB COMPANY-12968046

PATIENT
  Age: 63 Year
  Sex: Female

DRUGS (1)
  1. CETUXIMAB [Suspect]
     Indication: COLORECTAL CANCER METASTATIC
     Dosage: PATIENT RECEIVED APPROXIMATELY 100 MG
     Route: 041
     Dates: start: 20050504

REACTIONS (1)
  - MYOCARDIAL ISCHAEMIA [None]
